FAERS Safety Report 4939823-9 (Version None)
Quarter: 2006Q1

REPORT INFORMATION
  Report Type: 
  Country: None (occurrence: None)
  Receive Date: 20060310
  Receipt Date: 20060227
  Transmission Date: 20060701
  Serious: Yes (Other)
  Sender: FDA-Public Use
  Company Number: GB-JNJFOC-20060203444

PATIENT
  Age: 14 Year
  Sex: Male
  Weight: 100 kg

DRUGS (7)
  1. CONCERTA [Suspect]
     Dosage: 36MG + 18MG
     Route: 048
  2. SIMVASTATIN [Interacting]
  3. SIMVASTATIN [Interacting]
  4. SIMVASTATIN [Interacting]
  5. ATORVASTATIN CALCIUM [Interacting]
  6. ATORVASTATIN CALCIUM [Interacting]
  7. EZETIMIBE [Interacting]
     Route: 048

REACTIONS (4)
  - BLOOD CREATINE PHOSPHOKINASE INCREASED [None]
  - CHEST PAIN [None]
  - DRUG INTERACTION [None]
  - MUSCULOSKELETAL STIFFNESS [None]
